FAERS Safety Report 8517918 (Version 14)
Quarter: 2013Q2

REPORT INFORMATION
  Report Type: Spontaneous
  Country: US (occurrence: US)
  Receive Date: 20120417
  Receipt Date: 20130621
  Transmission Date: 20140414
  Serious: No
  Sender: FDA-Public Use
  Company Number: US-ASTRAZENECA-2011SE41510

PATIENT
  Age: 56 Year
  Sex: Female

DRUGS (77)
  1. NEXIUM [Suspect]
     Indication: GASTROOESOPHAGEAL REFLUX DISEASE
     Route: 048
     Dates: start: 20011112
  2. NEXIUM [Suspect]
     Indication: GASTROOESOPHAGEAL REFLUX DISEASE
     Route: 048
     Dates: start: 2003
  3. NEXIUM [Suspect]
     Indication: GASTROOESOPHAGEAL REFLUX DISEASE
     Route: 048
     Dates: start: 20050603
  4. NEXIUM [Suspect]
     Indication: GASTROOESOPHAGEAL REFLUX DISEASE
     Route: 048
     Dates: start: 20060131
  5. NEXIUM [Suspect]
     Indication: GASTROOESOPHAGEAL REFLUX DISEASE
     Route: 048
     Dates: start: 20070115
  6. NEXIUM [Suspect]
     Indication: GASTROOESOPHAGEAL REFLUX DISEASE
     Route: 048
     Dates: start: 20070427
  7. NEXIUM [Suspect]
     Indication: GASTROOESOPHAGEAL REFLUX DISEASE
     Route: 048
     Dates: start: 20071030
  8. NEXIUM [Suspect]
     Indication: GASTROOESOPHAGEAL REFLUX DISEASE
     Route: 048
     Dates: start: 20080119
  9. NEXIUM [Suspect]
     Indication: GASTROOESOPHAGEAL REFLUX DISEASE
     Route: 048
     Dates: start: 20091104
  10. NEXIUM [Suspect]
     Indication: GASTROOESOPHAGEAL REFLUX DISEASE
     Route: 048
     Dates: start: 20120515
  11. PREVACID [Concomitant]
  12. PRILOSEC [Concomitant]
  13. ZANTAC [Concomitant]
  14. TAGAMET [Concomitant]
  15. LORCET/HYDROCODONE/APAP [Concomitant]
     Indication: PAIN
     Dosage: 7.5/750
     Dates: start: 20050613
  16. LORCET/HYDROCODONE/APAP [Concomitant]
     Indication: ARTHRITIS
     Dosage: 7.5/750
     Dates: start: 20050613
  17. LORCET/HYDROCODONE/APAP [Concomitant]
     Indication: OSTEOPOROSIS
     Dosage: 7.5/750
     Dates: start: 20050613
  18. LORCET/HYDROCODONE/APAP [Concomitant]
     Indication: PAIN
     Dosage: 10/650 T PO QID PRN
     Route: 048
     Dates: start: 20060131
  19. LORCET/HYDROCODONE/APAP [Concomitant]
     Indication: ARTHRITIS
     Dosage: 10/650 T PO QID PRN
     Route: 048
     Dates: start: 20060131
  20. LORCET/HYDROCODONE/APAP [Concomitant]
     Indication: OSTEOPOROSIS
     Dosage: 10/650 T PO QID PRN
     Route: 048
     Dates: start: 20060131
  21. LORCET/HYDROCODONE/APAP [Concomitant]
     Indication: PAIN
     Dosage: 10/650
     Dates: start: 20060330
  22. LORCET/HYDROCODONE/APAP [Concomitant]
     Indication: ARTHRITIS
     Dosage: 10/650
     Dates: start: 20060330
  23. LORCET/HYDROCODONE/APAP [Concomitant]
     Indication: OSTEOPOROSIS
     Dosage: 10/650
     Dates: start: 20060330
  24. LORCET/HYDROCODONE/APAP [Concomitant]
     Indication: PAIN
     Dosage: 10/650 3-4 TABS PO QD
     Dates: start: 20070115
  25. LORCET/HYDROCODONE/APAP [Concomitant]
     Indication: ARTHRITIS
     Dosage: 10/650 3-4 TABS PO QD
     Dates: start: 20070115
  26. LORCET/HYDROCODONE/APAP [Concomitant]
     Indication: OSTEOPOROSIS
     Dosage: 10/650 3-4 TABS PO QD
     Dates: start: 20070115
  27. LORCET/HYDROCODONE/APAP [Concomitant]
     Indication: PAIN
     Dosage: 10/650 1 TAB PO Q 12 HOURS PRN FOR 30 DAYS
     Dates: start: 20071030
  28. LORCET/HYDROCODONE/APAP [Concomitant]
     Indication: ARTHRITIS
     Dosage: 10/650 1 TAB PO Q 12 HOURS PRN FOR 30 DAYS
     Dates: start: 20071030
  29. LORCET/HYDROCODONE/APAP [Concomitant]
     Indication: OSTEOPOROSIS
     Dosage: 10/650 1 TAB PO Q 12 HOURS PRN FOR 30 DAYS
     Dates: start: 20071030
  30. LORCET/HYDROCODONE/APAP [Concomitant]
     Indication: PAIN
     Dosage: 10/650 2 TO 3 TIMES A DAY
     Dates: start: 20080119
  31. LORCET/HYDROCODONE/APAP [Concomitant]
     Indication: ARTHRITIS
     Dosage: 10/650 2 TO 3 TIMES A DAY
     Dates: start: 20080119
  32. LORCET/HYDROCODONE/APAP [Concomitant]
     Indication: OSTEOPOROSIS
     Dosage: 10/650 2 TO 3 TIMES A DAY
     Dates: start: 20080119
  33. LORCET/HYDROCODONE/APAP [Concomitant]
     Indication: PAIN
     Dosage: 10/650
     Dates: start: 20091104
  34. LORCET/HYDROCODONE/APAP [Concomitant]
     Indication: ARTHRITIS
     Dosage: 10/650
     Dates: start: 20091104
  35. LORCET/HYDROCODONE/APAP [Concomitant]
     Indication: OSTEOPOROSIS
     Dosage: 10/650
     Dates: start: 20091104
  36. LORCET/HYDROCODONE/APAP [Concomitant]
     Indication: PAIN
     Dosage: 10/650 MG EVERY DAY BY MOUTH
     Route: 048
     Dates: start: 20120515
  37. LORCET/HYDROCODONE/APAP [Concomitant]
     Indication: ARTHRITIS
     Dosage: 10/650 MG EVERY DAY BY MOUTH
     Route: 048
     Dates: start: 20120515
  38. LORCET/HYDROCODONE/APAP [Concomitant]
     Indication: OSTEOPOROSIS
     Dosage: 10/650 MG EVERY DAY BY MOUTH
     Route: 048
     Dates: start: 20120515
  39. SOMA [Concomitant]
     Indication: MUSCLE SPASMS
     Dates: start: 20050107
  40. SOMA [Concomitant]
     Indication: MUSCLE SPASMS
     Dates: start: 20060526
  41. SOMA [Concomitant]
     Indication: MUSCLE SPASMS
     Dates: start: 20080119
  42. SOMA [Concomitant]
     Indication: MUSCLE SPASMS
     Dosage: DAILY
     Route: 048
     Dates: start: 20080119
  43. SOMA [Concomitant]
     Indication: MUSCLE SPASMS
     Dates: start: 20091104
  44. SOMA [Concomitant]
     Indication: MUSCLE SPASMS
     Dates: start: 20070115
  45. METOPROLOL [Concomitant]
     Indication: HYPERTENSION
     Dates: start: 20091104
  46. METOPROLOL [Concomitant]
     Indication: HYPERTENSION
     Dosage: DAILY
     Route: 048
     Dates: start: 20120515
  47. PHENERGAN/CODEINE [Concomitant]
     Indication: NAUSEA
     Dosage: 6.25-10 MG/5ML
     Dates: start: 20070115
  48. PHENERGAN/CODEINE [Concomitant]
     Indication: COUGH
     Dosage: 6.25-10 MG/5ML
     Dates: start: 20070115
  49. PHENERGAN/CODEINE [Concomitant]
     Indication: NAUSEA
     Dosage: 4 TABLET
     Dates: start: 20080119
  50. PHENERGAN/CODEINE [Concomitant]
     Indication: COUGH
     Dosage: 4 TABLET
     Dates: start: 20080119
  51. PHENERGAN/CODEINE [Concomitant]
     Indication: NAUSEA
     Dosage: T 4 TO 6 PRN
     Dates: start: 20060131
  52. PHENERGAN/CODEINE [Concomitant]
     Indication: COUGH
     Dosage: T 4 TO 6 PRN
     Dates: start: 20060131
  53. DUONAB [Concomitant]
     Indication: RESPIRATORY DISORDER
     Dosage: 4 VALES A DRUG
     Dates: start: 20080119
  54. DUONAB [Concomitant]
     Indication: ASTHMA
     Dosage: 4 VALES A DRUG
     Dates: start: 20080119
  55. ALBUTEROL [Concomitant]
     Dates: start: 20091104
  56. XANAX [Concomitant]
     Dates: start: 20020131
  57. XANAX [Concomitant]
     Dates: start: 20040523
  58. XANAX [Concomitant]
     Dates: start: 20050107
  59. XANAX [Concomitant]
     Dosage: 2 MG T PO Q DAILY T PO Q HS PRN
     Route: 048
     Dates: start: 20060131
  60. XANAX [Concomitant]
     Dates: start: 20060526
  61. AMOXICILLIN [Concomitant]
     Dates: start: 20080102
  62. PROTONIX [Concomitant]
     Dates: start: 20041226
  63. NAPROXEN [Concomitant]
     Dates: start: 20050613
  64. PENICILLIN VK [Concomitant]
     Dates: start: 20050613
  65. LYRICA [Concomitant]
     Dates: start: 20060903
  66. PREDNISONE [Concomitant]
     Dates: start: 20070204
  67. FLEXERIL [Concomitant]
     Dates: start: 20070904, end: 20071030
  68. NEURONTIN [Concomitant]
     Dates: start: 20071030
  69. SKELAXIN [Concomitant]
     Dosage: 1 TAB QID PRN FOR 2 DAYS
     Dates: start: 20071030
  70. TRIEST [Concomitant]
     Dosage: Q DAY
     Route: 048
     Dates: start: 20060131
  71. PREMARIN [Concomitant]
     Route: 048
     Dates: start: 20011112
  72. PEPCID [Concomitant]
     Dates: start: 2002
  73. TUMS [Concomitant]
     Dates: start: 2000
  74. ROLAIDS [Concomitant]
     Dates: start: 2001
  75. MYLANTA [Concomitant]
     Dates: start: 2002
  76. SUMO [Concomitant]
  77. METHYLPREDNISOLONE [Concomitant]
     Dates: start: 20050808

REACTIONS (9)
  - Osteoporosis [Unknown]
  - Pain [Unknown]
  - Emotional distress [Unknown]
  - Multiple fractures [Unknown]
  - Stress [Unknown]
  - Bone pain [Unknown]
  - Arthritis [Unknown]
  - Pain in extremity [Unknown]
  - Depression [Unknown]
